FAERS Safety Report 18546427 (Version 1)
Quarter: 2020Q4

REPORT INFORMATION
  Report Type: Spontaneous
  Country: PL (occurrence: PL)
  Receive Date: 20201125
  Receipt Date: 20201125
  Transmission Date: 20210114
  Serious: Yes (Death, Life-Threatening, Hospitalization)
  Sender: FDA-Public Use
  Company Number: NVSC2020PL313052

PATIENT
  Age: 60 Year
  Sex: Male
  Weight: 63.1 kg

DRUGS (4)
  1. TYSABRI [Suspect]
     Active Substance: NATALIZUMAB
     Dosage: UNK (INFUSED FOR OVER 1 HOUR)
     Route: 065
     Dates: start: 2007, end: 20140110
  2. SIPONIMOD [Suspect]
     Active Substance: SIPONIMOD
     Dosage: 2 MG
     Route: 048
     Dates: start: 20160405, end: 20190717
  3. SIPONIMOD [Suspect]
     Active Substance: SIPONIMOD
     Indication: SECONDARY PROGRESSIVE MULTIPLE SCLEROSIS
     Dosage: UNK
     Route: 048
     Dates: start: 20141210, end: 20160306
  4. TYSABRI [Suspect]
     Active Substance: NATALIZUMAB
     Indication: PRODUCT USED FOR UNKNOWN INDICATION
     Dosage: UNK (INFUSED FOR OVER 1 HOUR)
     Route: 065
     Dates: start: 2002, end: 2005

REACTIONS (14)
  - Disorientation [Unknown]
  - Malaise [Unknown]
  - Staphylococcal sepsis [Fatal]
  - Respiratory rate increased [Unknown]
  - Pneumonia [Not Recovered/Not Resolved]
  - Bronchitis [Unknown]
  - Glioblastoma multiforme [Fatal]
  - Pyrexia [Unknown]
  - Asthenia [Unknown]
  - Respiratory failure [Not Recovered/Not Resolved]
  - Multiple organ dysfunction syndrome [Fatal]
  - Post procedural haematoma [Not Recovered/Not Resolved]
  - Blood pressure increased [Unknown]
  - Cognitive disorder [Unknown]

NARRATIVE: CASE EVENT DATE: 2019
